FAERS Safety Report 14177147 (Version 2)
Quarter: 2018Q3

REPORT INFORMATION
  Report Type: Spontaneous
  Country: US (occurrence: US)
  Receive Date: 20171110
  Receipt Date: 20180907
  Transmission Date: 20181010
  Serious: No
  Sender: FDA-Public Use
  Company Number: US-PFIZER INC-2017484442

PATIENT
  Age: 57 Year
  Sex: Female

DRUGS (2)
  1. XELJANZ [Suspect]
     Active Substance: TOFACITINIB CITRATE
     Indication: RHEUMATOID ARTHRITIS
  2. XELJANZ [Suspect]
     Active Substance: TOFACITINIB CITRATE
     Indication: PAIN
     Dosage: 5 MG, 2X/DAY
     Dates: start: 20170814

REACTIONS (1)
  - Drug effect delayed [Unknown]

NARRATIVE: CASE EVENT DATE: 20170814
